FAERS Safety Report 23631965 (Version 1)
Quarter: 2024Q1

REPORT INFORMATION
  Report Type: Spontaneous
  Country: US (occurrence: None)
  Receive Date: 20240313
  Receipt Date: 20240313
  Transmission Date: 20240409
  Serious: Yes (Other)
  Sender: FDA-Public Use
  Company Number: None

PATIENT
  Age: 70 Year
  Sex: Female
  Weight: 84.6 kg

DRUGS (17)
  1. MOUNJARO [Suspect]
     Active Substance: TIRZEPATIDE
     Indication: Blood glucose increased
     Dosage: OTHER QUANTITY : 1 INJECTION(S);?OTHER FREQUENCY : 1X WEEK;?OTHER ROUTE : INJECTION STOMACH AREA;?
     Route: 050
  2. Dexcom7 [Concomitant]
  3. INSULIN NOS [Concomitant]
     Active Substance: INSULIN NOS
  4. FARXIGA [Concomitant]
     Active Substance: DAPAGLIFLOZIN PROPANEDIOL
  5. ACTOS [Concomitant]
     Active Substance: PIOGLITAZONE HYDROCHLORIDE
  6. LISINOPRIL [Concomitant]
     Active Substance: LISINOPRIL
  7. amolodipine [Concomitant]
  8. LYRICA [Concomitant]
     Active Substance: PREGABALIN
  9. rosastatin [Concomitant]
  10. MOUNJARO [Concomitant]
     Active Substance: TIRZEPATIDE
  11. LEVOTHYROXINE [Concomitant]
     Active Substance: LEVOTHYROXINE\LEVOTHYROXINE SODIUM
  12. ASPIRIN [Concomitant]
     Active Substance: ASPIRIN
  13. SLO-MAG [Concomitant]
  14. ZINC [Concomitant]
     Active Substance: PYRITHIONE ZINC\ZINC\ZINC CHLORIDE
  15. VITAMIN B12 [Concomitant]
     Active Substance: CYANOCOBALAMIN
  16. VITAMIN E [Concomitant]
     Active Substance: .ALPHA.-TOCOPHEROL
  17. VITAMIN D3 [Concomitant]
     Active Substance: CHOLECALCIFEROL

REACTIONS (8)
  - Product availability issue [None]
  - Therapeutic response unexpected [None]
  - Blood pressure increased [None]
  - Cardiac disorder [None]
  - Renal disorder [None]
  - Eye disorder [None]
  - Blood pressure abnormal [None]
  - Thyroid disorder [None]

NARRATIVE: CASE EVENT DATE: 20240311
